FAERS Safety Report 15930079 (Version 2)
Quarter: 2019Q1

REPORT INFORMATION
  Report Type: Report from Study
  Country: US (occurrence: US)
  Receive Date: 20190206
  Receipt Date: 20190306
  Transmission Date: 20190417
  Serious: Yes (Hospitalization, Other)
  Sender: FDA-Public Use
  Company Number: US-MYLANLABS-2018M1090082

PATIENT
  Age: 17 Year
  Sex: Male
  Weight: 66.8 kg

DRUGS (134)
  1. ALBUTEROL HFA [Concomitant]
     Active Substance: ALBUTEROL SULFATE
     Indication: PULMONARY FUNCTION TEST DECREASED
     Dosage: UNK
     Route: 065
     Dates: start: 20170910, end: 20170910
  2. ALBUTEROL HFA [Concomitant]
     Active Substance: ALBUTEROL SULFATE
     Dosage: UNK
     Route: 065
     Dates: start: 20180115
  3. ORKAMBI [Concomitant]
     Active Substance: IVACAFTOR\LUMACAFTOR
     Dosage: 2 DF, BID
     Route: 048
     Dates: start: 20170916, end: 20170917
  4. ORKAMBI [Concomitant]
     Active Substance: IVACAFTOR\LUMACAFTOR
     Dosage: 2 DF, BID
     Route: 048
     Dates: start: 20180118, end: 20180118
  5. LACTATED RINGERS SOLUTION [Concomitant]
     Active Substance: CALCIUM CHLORIDE\POTASSIUM CHLORIDE\SODIUM CHLORIDE\SODIUM LACTATE
     Indication: FLUID REPLACEMENT
     Dosage: 200 ML, QD
     Route: 048
     Dates: start: 20170911, end: 20170911
  6. SODIUM CHLORIDE. [Concomitant]
     Active Substance: SODIUM CHLORIDE
     Indication: CYSTIC FIBROSIS LUNG
     Dosage: 100 ML, QD
     Route: 042
     Dates: start: 20170911, end: 20170918
  7. SODIUM CHLORIDE. [Concomitant]
     Active Substance: SODIUM CHLORIDE
     Dosage: 4 ML, QID
     Route: 055
     Dates: start: 20180111, end: 20180112
  8. SODIUM CHLORIDE. [Concomitant]
     Active Substance: SODIUM CHLORIDE
     Dosage: 4 ML, TID
     Route: 055
     Dates: start: 20180113, end: 20180114
  9. ALBUTEROL                          /00139501/ [Concomitant]
     Active Substance: ALBUTEROL
     Indication: PULMONARY FUNCTION TEST DECREASED
     Dosage: 2 DF (PUFFS), TID
     Route: 055
     Dates: start: 20170911, end: 20170911
  10. CEFTAZIDIME. [Concomitant]
     Active Substance: CEFTAZIDIME
     Indication: BACTERIAL INFECTION
     Dosage: 2000 MG, QD
     Route: 042
     Dates: start: 20170910, end: 20170910
  11. HEPARIN [Concomitant]
     Active Substance: HEPARIN SODIUM
     Indication: PRODUCT USED FOR UNKNOWN INDICATION
     Dosage: 10 DOSAGE FORM, BID (10 U, BID)
     Route: 042
     Dates: start: 20170914, end: 20170917
  12. ONDANSETRON [Concomitant]
     Active Substance: ONDANSETRON
     Indication: NAUSEA
     Dosage: 4 MG, QD
     Route: 042
     Dates: start: 20170911, end: 20170911
  13. AQUADEKS                           /07679501/ [Concomitant]
     Active Substance: MINERALS\VITAMINS
     Dosage: 1 DF, BID
     Route: 048
     Dates: start: 20170918, end: 20170918
  14. ALBUTEROL                          /00139501/ [Concomitant]
     Active Substance: ALBUTEROL
     Dosage: UNK
     Route: 065
     Dates: start: 20180114, end: 20180114
  15. BECLOMETHASONE                     /00212601/ [Concomitant]
     Active Substance: BECLOMETHASONE
     Dosage: 2 DF (PUFFS), BID
     Route: 055
     Dates: start: 20180110, end: 20180117
  16. PYRIDOXINE [Concomitant]
     Active Substance: PYRIDOXINE
     Dosage: 25 MILLIGRAM
     Route: 048
     Dates: start: 20181114, end: 20181121
  17. TOBI [Suspect]
     Active Substance: TOBRAMYCIN
     Dosage: 300 MG, BID
     Route: 055
     Dates: start: 20180829
  18. ALBUTEROL HFA [Concomitant]
     Active Substance: ALBUTEROL SULFATE
     Dosage: UNK
     Route: 065
     Dates: start: 20170912, end: 20180108
  19. AZITHROMYCIN ANHYDROUS. [Concomitant]
     Active Substance: AZITHROMYCIN ANHYDROUS
     Indication: PSEUDOMONAS INFECTION
     Dosage: 250 MG, TIW
     Route: 048
     Dates: start: 20160511, end: 20170910
  20. CETIRIZINE [Concomitant]
     Active Substance: CETIRIZINE HYDROCHLORIDE
     Indication: RHINITIS ALLERGIC
  21. PANCRELIPASE. [Concomitant]
     Active Substance: PANCRELIPASE
     Dosage: 22 DF, QD
     Route: 048
     Dates: start: 20170913, end: 20170913
  22. PANCRELIPASE. [Concomitant]
     Active Substance: PANCRELIPASE
     Dosage: 9 DF, BID
     Route: 048
     Dates: start: 20170918, end: 20170918
  23. PANCRELIPASE. [Concomitant]
     Active Substance: PANCRELIPASE
     Dosage: 34 DF, QD
     Route: 048
     Dates: start: 20170919
  24. AQUADEKS                           /07679501/ [Concomitant]
     Active Substance: MINERALS\VITAMINS
     Dosage: 1 DF, BID
     Route: 048
     Dates: start: 20170918, end: 20170918
  25. SULFAMETHOXAZOLE AND TRIMETHOPRIM [Concomitant]
     Active Substance: SULFAMETHOXAZOLE\TRIMETHOPRIM
     Indication: STAPHYLOCOCCAL INFECTION
  26. ALBUTEROL                          /00139501/ [Concomitant]
     Active Substance: ALBUTEROL
     Dosage: 2 DF (PUFFS), QID
     Route: 055
     Dates: start: 20170912, end: 20180108
  27. BECLOMETHASONE                     /00212601/ [Concomitant]
     Active Substance: BECLOMETHASONE
     Indication: ASTHMA
     Dosage: 2 DF (PUFFS), QD
     Route: 055
     Dates: start: 20170911, end: 20170911
  28. BECLOMETHASONE                     /00212601/ [Concomitant]
     Active Substance: BECLOMETHASONE
     Dosage: 2 DF (PUFFS), TID
     Route: 055
     Dates: start: 20180109, end: 20180109
  29. CEFTAZIDIME. [Concomitant]
     Active Substance: CEFTAZIDIME
     Dosage: 2000 MG, QD
     Route: 042
     Dates: start: 20180108, end: 20180108
  30. CEFTAZIDIME. [Concomitant]
     Active Substance: CEFTAZIDIME
     Dosage: 2000 MG, QID
     Route: 042
     Dates: start: 20180110, end: 20180117
  31. FENTANYL. [Concomitant]
     Active Substance: FENTANYL
     Dosage: 50 MICROGRAM, QD
     Route: 042
     Dates: start: 20170911, end: 20170911
  32. ALBUTEROL                          /00139501/ [Concomitant]
     Active Substance: ALBUTEROL
     Indication: CYSTIC FIBROSIS LUNG
     Dosage: 2 DF (PUFFS), QD
     Route: 055
     Dates: start: 20170910, end: 20170910
  33. ALBUTEROL                          /00139501/ [Concomitant]
     Active Substance: ALBUTEROL
     Dosage: UNK
     Route: 065
     Dates: start: 20180110, end: 20180113
  34. BECLOMETHASONE                     /00212601/ [Concomitant]
     Active Substance: BECLOMETHASONE
     Dosage: 2 DF (PUFFS), TID
     Route: 055
     Dates: start: 20180109, end: 20180109
  35. BECLOMETHASONE                     /00212601/ [Concomitant]
     Active Substance: BECLOMETHASONE
     Dosage: 2 DF (PUFFS), QD
     Route: 055
     Dates: start: 20180118, end: 20180118
  36. AVIBACTAM W/CEFTAZIDIME [Concomitant]
     Active Substance: AVIBACTAM SODIUM\CEFTAZIDIME
     Dosage: 2500 MILLIGRAM
     Route: 042
     Dates: start: 20181118, end: 20181121
  37. METHYLPREDNISOLONE. [Concomitant]
     Active Substance: METHYLPREDNISOLONE
     Dosage: 20 MILLIGRAM
     Route: 042
     Dates: start: 20181113, end: 20181116
  38. TOBI [Suspect]
     Active Substance: TOBRAMYCIN
     Dosage: 300 MG, BID
     Route: 055
     Dates: start: 20170919
  39. PULMOZYME [Concomitant]
     Active Substance: DORNASE ALFA
     Indication: CYSTIC FIBROSIS LUNG
     Dosage: 2.5 MG, QD
     Route: 055
     Dates: start: 20170302, end: 20180108
  40. NASONEX [Concomitant]
     Active Substance: MOMETASONE FUROATE
     Indication: RHINITIS ALLERGIC
     Dosage: 50 UG, QD
     Route: 045
     Dates: start: 20160511, end: 20170911
  41. NASONEX [Concomitant]
     Active Substance: MOMETASONE FUROATE
     Dosage: 2 DF (SPRAY), QD
     Route: 045
     Dates: start: 20180115
  42. ORKAMBI [Concomitant]
     Active Substance: IVACAFTOR\LUMACAFTOR
     Dosage: 2 DF, BID
     Route: 048
     Dates: start: 20180119
  43. PANCRELIPASE. [Concomitant]
     Active Substance: PANCRELIPASE
     Dosage: 9 DF, TID
     Route: 048
     Dates: start: 20170914, end: 20170917
  44. PANTOPRAZOLE [Concomitant]
     Active Substance: PANTOPRAZOLE
     Indication: PANCREATIC FAILURE
     Dosage: 20 MG, QD
     Route: 048
     Dates: start: 20160511, end: 20180108
  45. LEVOFLOXACIN. [Concomitant]
     Active Substance: LEVOFLOXACIN
     Indication: PSEUDOMONAS INFECTION
     Dosage: 750 MG, QD
     Route: 048
     Dates: start: 20170616, end: 20170630
  46. SODIUM CHLORIDE. [Concomitant]
     Active Substance: SODIUM CHLORIDE
     Dosage: 4 ML, QD
     Route: 055
     Dates: start: 20170918, end: 20170918
  47. SODIUM CHLORIDE. [Concomitant]
     Active Substance: SODIUM CHLORIDE
     Dosage: 100 MILLILITER, QD
     Route: 042
     Dates: start: 20170911, end: 20170918
  48. ALBUTEROL                          /00139501/ [Concomitant]
     Active Substance: ALBUTEROL
     Dosage: UNK
     Route: 065
     Dates: start: 20180109, end: 20180109
  49. BECLOMETHASONE                     /00212601/ [Concomitant]
     Active Substance: BECLOMETHASONE
     Dosage: 2 DF (PUFFS), BID
     Route: 055
     Dates: start: 20180110, end: 20180117
  50. CEFTAZIDIME. [Concomitant]
     Active Substance: CEFTAZIDIME
     Dosage: 2000 MG, TID
     Route: 042
     Dates: start: 20180109, end: 20180109
  51. CEFTAZIDIME. [Concomitant]
     Active Substance: CEFTAZIDIME
     Dosage: 2000 MG, BID
     Route: 042
     Dates: start: 20180118, end: 20180118
  52. HEPARIN [Concomitant]
     Active Substance: HEPARIN SODIUM
     Indication: PRODUCT USED FOR UNKNOWN INDICATION
     Dosage: 10 U, BID
     Route: 042
     Dates: start: 20170914, end: 20170917
  53. HEPARIN [Concomitant]
     Active Substance: HEPARIN SODIUM
     Dosage: 5 U, QD
     Route: 042
     Dates: start: 20180109, end: 20180109
  54. HEPARIN [Concomitant]
     Active Substance: HEPARIN SODIUM
     Dosage: 50 U, QD
     Route: 042
     Dates: start: 20180112, end: 20180112
  55. PROPOFOL. [Concomitant]
     Active Substance: PROPOFOL
     Indication: SEDATION
     Dosage: 92.28 MG, VARIABLE
     Route: 042
     Dates: start: 20170911, end: 20170911
  56. ALBUTEROL                          /00139501/ [Concomitant]
     Active Substance: ALBUTEROL
     Dosage: UNK
     Dates: start: 20180115
  57. AMIKACIN. [Concomitant]
     Active Substance: AMIKACIN
     Dosage: 2000 MILLIGRAM
     Route: 042
     Dates: start: 20181113, end: 20181120
  58. PREDNISONE. [Concomitant]
     Active Substance: PREDNISONE
     Dosage: 10 MILLIGRAM
     Route: 048
     Dates: start: 20181117, end: 20181119
  59. PULMOZYME [Concomitant]
     Active Substance: DORNASE ALFA
     Dosage: 2.5 MG, QD
     Route: 055
     Dates: start: 20180109, end: 20180109
  60. PULMOZYME [Concomitant]
     Active Substance: DORNASE ALFA
     Dosage: 2.5 MG, BID
     Route: 055
     Dates: start: 20180110, end: 20180122
  61. ORKAMBI [Concomitant]
     Active Substance: IVACAFTOR\LUMACAFTOR
     Dosage: 2 DF, BID
     Route: 048
     Dates: start: 20170919, end: 20180107
  62. PANTOPRAZOLE [Concomitant]
     Active Substance: PANTOPRAZOLE
     Indication: PANCREATIC FAILURE
  63. AQUADEKS                           /07679501/ [Concomitant]
     Active Substance: MINERALS\VITAMINS
     Dosage: 1 DF, BID
     Route: 048
     Dates: start: 20170919
  64. SULFAMETHOXAZOLE AND TRIMETHOPRIM [Concomitant]
     Active Substance: SULFAMETHOXAZOLE\TRIMETHOPRIM
     Indication: STAPHYLOCOCCAL INFECTION
     Dosage: 1 DF, BID
     Route: 048
     Dates: start: 20170616, end: 20170707
  65. CEFTAZIDIME. [Concomitant]
     Active Substance: CEFTAZIDIME
     Dosage: 2000 MG, QID
     Route: 042
     Dates: start: 20170912, end: 20170917
  66. FENTANYL. [Concomitant]
     Active Substance: FENTANYL
     Indication: PAIN
     Dosage: 50 UG, QD
     Route: 042
     Dates: start: 20170911, end: 20170911
  67. HEPARIN [Concomitant]
     Active Substance: HEPARIN SODIUM
     Dosage: 50 DOSAGE FORM, QD (50 U, QD)
     Route: 042
     Dates: start: 20180112, end: 20180112
  68. HEPARIN [Concomitant]
     Active Substance: HEPARIN SODIUM
     Dosage: 5 U, QD
     Route: 042
     Dates: start: 20180115, end: 20180117
  69. INFLUENZA VACCINE [Concomitant]
     Active Substance: INFLUENZA VIRUS VACCINE
     Indication: ANTIVIRAL PROPHYLAXIS
     Dosage: 0.05 MG, QD
     Route: 030
     Dates: start: 20170113, end: 20170113
  70. LINEZOLID. [Concomitant]
     Active Substance: LINEZOLID
     Dosage: 600 UNK
     Route: 048
     Dates: start: 20181113, end: 20181121
  71. MIDAZOLAM [Concomitant]
     Active Substance: MIDAZOLAM HYDROCHLORIDE
     Dosage: 1.5 MILLIGRAM, QD
     Route: 042
     Dates: start: 20170911, end: 20170911
  72. LACTATED RINGERS SOLUTION [Concomitant]
     Active Substance: CALCIUM CHLORIDE\POTASSIUM CHLORIDE\SODIUM CHLORIDE\SODIUM LACTATE
     Indication: FLUID REPLACEMENT
     Dosage: 200 ML, QD
     Route: 048
     Dates: start: 20170911, end: 20170911
  73. ALBUTEROL                          /00139501/ [Concomitant]
     Active Substance: ALBUTEROL
     Indication: PULMONARY FUNCTION TEST DECREASED
     Dosage: 2 DF (PUFFS), TID
     Route: 055
     Dates: start: 20170911, end: 20170911
  74. BECLOMETHASONE                     /00212601/ [Concomitant]
     Active Substance: BECLOMETHASONE
     Dosage: 2 DF(PUFFS), BID
     Route: 055
     Dates: start: 20170912, end: 20170917
  75. TOBI [Suspect]
     Active Substance: TOBRAMYCIN
     Indication: PSEUDOMONAS INFECTION
     Dosage: 300 MG, BID
     Route: 055
     Dates: start: 20170901, end: 20170929
  76. TOBI [Suspect]
     Active Substance: TOBRAMYCIN
     Dosage: 300 MG, BID
     Route: 055
     Dates: start: 20180829
  77. ALBUTEROL HFA [Concomitant]
     Active Substance: ALBUTEROL SULFATE
     Dosage: UNK
     Route: 065
     Dates: start: 20180109, end: 20180109
  78. ALBUTEROL HFA [Concomitant]
     Active Substance: ALBUTEROL SULFATE
     Dosage: UNK
     Route: 065
     Dates: start: 20180114, end: 20180114
  79. NASONEX [Concomitant]
     Active Substance: MOMETASONE FUROATE
     Indication: RHINITIS ALLERGIC
     Dosage: 2 DF (SPRAY), QD
     Route: 045
     Dates: start: 20170912, end: 20180114
  80. ORKAMBI [Concomitant]
     Active Substance: IVACAFTOR\LUMACAFTOR
     Indication: GENE MUTATION
     Dosage: 2 DF, BID
     Route: 048
     Dates: start: 20170509, end: 20170910
  81. ORKAMBI [Concomitant]
     Active Substance: IVACAFTOR\LUMACAFTOR
     Dosage: 2 DF, BID
     Route: 048
     Dates: start: 20170911, end: 20170911
  82. ORKAMBI [Concomitant]
     Active Substance: IVACAFTOR\LUMACAFTOR
     Dosage: 2 DF, BID
     Route: 048
     Dates: start: 20170912, end: 20170915
  83. ORKAMBI [Concomitant]
     Active Substance: IVACAFTOR\LUMACAFTOR
     Dosage: 2 DF, BID
     Route: 048
     Dates: start: 20170918, end: 20170918
  84. ORKAMBI [Concomitant]
     Active Substance: IVACAFTOR\LUMACAFTOR
     Dosage: 2 DF, BID
     Route: 048
     Dates: start: 20180109, end: 20180109
  85. PANCRELIPASE. [Concomitant]
     Active Substance: PANCRELIPASE
     Indication: PANCREATIC FAILURE
     Dosage: 31 DF, QD
     Route: 048
     Dates: start: 20161012, end: 20170909
  86. QVAR [Concomitant]
     Active Substance: BECLOMETHASONE DIPROPIONATE
     Indication: ASTHMA
     Dosage: 2 DF (2 PUFFS), BID
     Route: 055
     Dates: start: 20160511
  87. ALBUTEROL                          /00139501/ [Concomitant]
     Active Substance: ALBUTEROL
     Dosage: UNK
     Dates: start: 20180115
  88. BECLOMETHASONE                     /00212601/ [Concomitant]
     Active Substance: BECLOMETHASONE
     Dosage: 2 DF (PUFFS), QD
     Route: 055
     Dates: start: 20180118, end: 20180118
  89. CEFTAZIDIME. [Concomitant]
     Active Substance: CEFTAZIDIME
     Dosage: 2000 MG, BID
     Route: 042
     Dates: start: 20170918, end: 20170918
  90. LINEZOLID. [Concomitant]
     Active Substance: LINEZOLID
     Indication: BACTERIAL INFECTION
     Dosage: 600 MG, BID
     Route: 042
     Dates: start: 20170911, end: 20170917
  91. LINEZOLID. [Concomitant]
     Active Substance: LINEZOLID
     Dosage: 600 MG, QD
     Route: 042
     Dates: start: 20180118, end: 20180118
  92. AQUADEKS                           /07679501/ [Concomitant]
     Active Substance: MINERALS\VITAMINS
     Indication: NUTRITIONAL SUPPLEMENTATION
     Dosage: 1 DF, BID
     Route: 048
     Dates: start: 20161120, end: 20170911
  93. ALBUTEROL                          /00139501/ [Concomitant]
     Active Substance: ALBUTEROL
     Dosage: UNK
     Route: 065
     Dates: start: 20180109, end: 20180109
  94. BECLOMETHASONE                     /00212601/ [Concomitant]
     Active Substance: BECLOMETHASONE
     Indication: ASTHMA
     Dosage: 2 DF (PUFFS), QD
     Route: 055
     Dates: start: 20170911, end: 20170911
  95. PANCRELIPASE. [Concomitant]
     Active Substance: PANCRELIPASE
     Dosage: 7 DF, BID
     Route: 048
     Dates: start: 20180118, end: 20180118
  96. AQUADEKS                           /07679501/ [Concomitant]
     Active Substance: MINERALS\VITAMINS
     Indication: NUTRITIONAL SUPPLEMENTATION
     Dosage: 1 DF, BID
     Route: 048
     Dates: start: 20161120, end: 20170911
  97. SODIUM CHLORIDE. [Concomitant]
     Active Substance: SODIUM CHLORIDE
     Dosage: 4 ML, TID
     Route: 055
     Dates: start: 20170912, end: 20170917
  98. SODIUM CHLORIDE. [Concomitant]
     Active Substance: SODIUM CHLORIDE
     Dosage: 100 MILLILITER, QD
     Route: 042
     Dates: start: 20180109, end: 20180118
  99. ALBUTEROL                          /00139501/ [Concomitant]
     Active Substance: ALBUTEROL
     Indication: CYSTIC FIBROSIS LUNG
     Dosage: 2 DF (PUFFS), QD
     Route: 055
     Dates: start: 20170910, end: 20170910
  100. ALBUTEROL                          /00139501/ [Concomitant]
     Active Substance: ALBUTEROL
     Dosage: UNK
     Route: 065
     Dates: start: 20180114, end: 20180114
  101. HEPARIN [Concomitant]
     Active Substance: HEPARIN SODIUM
     Dosage: 100 U, QD
     Route: 042
     Dates: start: 20180110, end: 20180111
  102. HEPARIN [Concomitant]
     Active Substance: HEPARIN SODIUM
     Dosage: 5 U, QD
     Route: 042
     Dates: start: 20180111, end: 20180112
  103. AQUADEKS                           /07679501/ [Concomitant]
     Active Substance: MINERALS\VITAMINS
     Dosage: 1 DF, BID
     Route: 048
     Dates: start: 20170912, end: 20170917
  104. ALBUTEROL                          /00139501/ [Concomitant]
     Active Substance: ALBUTEROL
     Dosage: 2 DF (PUFFS), QID
     Route: 055
     Dates: start: 20170912, end: 20180108
  105. IMIPENEM AND CILASTATIN [Concomitant]
     Active Substance: CILASTATIN SODIUM\IMIPENEM
     Dosage: 1000 MILLIGRAM
     Route: 042
     Dates: start: 20181113, end: 20181118
  106. TOBI [Suspect]
     Active Substance: TOBRAMYCIN
     Indication: CYSTIC FIBROSIS
     Dosage: 300 MG, BID
     Route: 055
     Dates: start: 20110414
  107. ALBUTEROL HFA [Concomitant]
     Active Substance: ALBUTEROL SULFATE
     Indication: CYSTIC FIBROSIS LUNG
     Dosage: 2 DF (2 PUFFS), QID
     Route: 055
     Dates: start: 20170120, end: 20170909
  108. ALBUTEROL HFA [Concomitant]
     Active Substance: ALBUTEROL SULFATE
     Dosage: UNK
     Route: 065
     Dates: start: 20180110, end: 20180113
  109. CETIRIZINE [Concomitant]
     Active Substance: CETIRIZINE HYDROCHLORIDE
     Indication: RHINITIS ALLERGIC
     Dosage: 10 MG, QD
     Route: 048
     Dates: start: 20170419
  110. HYPERSOL [Concomitant]
     Indication: CYSTIC FIBROSIS LUNG
     Dosage: 1 DF, BID
     Route: 055
     Dates: start: 20160826
  111. PANCRELIPASE. [Concomitant]
     Active Substance: PANCRELIPASE
     Dosage: 9 DF, TID
     Route: 048
     Dates: start: 20170912, end: 20170912
  112. PANCRELIPASE. [Concomitant]
     Active Substance: PANCRELIPASE
     Dosage: 7 DF, TID
     Route: 048
     Dates: start: 20180110, end: 20180117
  113. PANCRELIPASE. [Concomitant]
     Active Substance: PANCRELIPASE
     Dosage: 40 MG, QD
     Route: 048
     Dates: start: 20180109
  114. SODIUM CHLORIDE. [Concomitant]
     Active Substance: SODIUM CHLORIDE
     Dosage: 4 ML, TID
     Route: 055
     Dates: start: 20180117, end: 20180117
  115. SODIUM CHLORIDE. [Concomitant]
     Active Substance: SODIUM CHLORIDE
     Dosage: 4 ML, TID
     Route: 055
     Dates: start: 20180118, end: 20180118
  116. BECLOMETHASONE                     /00212601/ [Concomitant]
     Active Substance: BECLOMETHASONE
     Dosage: 2 DF(PUFFS), BID
     Route: 055
     Dates: start: 20170912, end: 20170917
  117. BECLOMETHASONE                     /00212601/ [Concomitant]
     Active Substance: BECLOMETHASONE
     Dosage: 2 DF (PUFFS), QD
     Route: 055
     Dates: start: 20170918, end: 20170918
  118. CEFTAZIDIME. [Concomitant]
     Active Substance: CEFTAZIDIME
     Dosage: 2000 MG, TID
     Route: 042
     Dates: start: 20170911, end: 20170911
  119. LINEZOLID. [Concomitant]
     Active Substance: LINEZOLID
     Dosage: 600 MG, QD
     Route: 042
     Dates: start: 20170918, end: 20170918
  120. LINEZOLID. [Concomitant]
     Active Substance: LINEZOLID
     Dosage: 600 MG, BID
     Route: 042
     Dates: start: 20180109, end: 20180117
  121. AQUADEKS                           /07679501/ [Concomitant]
     Active Substance: MINERALS\VITAMINS
     Dosage: 1 DF, BID
     Route: 048
     Dates: start: 20170919
  122. PREDNISONE. [Concomitant]
     Active Substance: PREDNISONE
     Dosage: 5 MILLIGRAM
     Route: 048
     Dates: start: 20181120, end: 20181121
  123. TOBI [Suspect]
     Active Substance: TOBRAMYCIN
     Dosage: 300 MG, BID
     Route: 055
     Dates: start: 20110414
  124. TOBI [Suspect]
     Active Substance: TOBRAMYCIN
     Dosage: 300 MG, BID
     Route: 055
     Dates: start: 20170901, end: 20170929
  125. PANCRELIPASE. [Concomitant]
     Active Substance: PANCRELIPASE
     Indication: PANCREATIC FAILURE
     Dosage: 9 DF, BID
     Route: 048
     Dates: start: 20170911, end: 20170911
  126. PANCRELIPASE. [Concomitant]
     Active Substance: PANCRELIPASE
     Dosage: 40 MG, QD
     Route: 048
     Dates: start: 20180109, end: 20180109
  127. AQUADEKS                           /07679501/ [Concomitant]
     Active Substance: MINERALS\VITAMINS
     Dosage: 1 DF, BID
     Route: 048
     Dates: start: 20170912, end: 20170917
  128. CHOLECALCIFEROL [Concomitant]
     Active Substance: CHOLECALCIFEROL
     Indication: VITAMIN D DEFICIENCY
     Dosage: 5000 U, QD
     Route: 048
     Dates: start: 20170913, end: 20170913
  129. SODIUM CHLORIDE. [Concomitant]
     Active Substance: SODIUM CHLORIDE
     Dosage: 100 ML, QD
     Route: 042
     Dates: start: 20180109, end: 20180118
  130. SODIUM CHLORIDE. [Concomitant]
     Active Substance: SODIUM CHLORIDE
     Dosage: 4 ML, QID
     Route: 055
     Dates: start: 20180115, end: 20180116
  131. ALBUTEROL                          /00139501/ [Concomitant]
     Active Substance: ALBUTEROL
     Dosage: UNK
     Route: 065
     Dates: start: 20180110, end: 20180113
  132. ALTEPLASE. [Concomitant]
     Active Substance: ALTEPLASE
     Indication: THROMBOSIS PROPHYLAXIS
     Dosage: 2 MG, QD
     Route: 042
     Dates: start: 20180112, end: 20180112
  133. MIDAZOLAM [Concomitant]
     Active Substance: MIDAZOLAM HYDROCHLORIDE
     Indication: TENSION
     Dosage: 1.5 MG, QD
     Route: 042
     Dates: start: 20170911, end: 20170911
  134. BECLOMETHASONE                     /00212601/ [Concomitant]
     Active Substance: BECLOMETHASONE
     Dosage: 2 DF (PUFFS), QD
     Route: 055
     Dates: start: 20170918, end: 20170918

REACTIONS (24)
  - Blood glucose increased [Unknown]
  - Vitamin D decreased [Unknown]
  - Blood potassium increased [Unknown]
  - Enzyme abnormality [Recovered/Resolved]
  - Weight increased [Recovered/Resolved]
  - Anion gap decreased [Unknown]
  - Platelet count increased [Unknown]
  - Red blood cell count increased [Unknown]
  - Cough [Unknown]
  - Bronchial wall thickening [Unknown]
  - Haemoglobin increased [Unknown]
  - Concomitant disease aggravated [Recovered/Resolved]
  - Spinal cord compression [Unknown]
  - White blood cell count increased [Unknown]
  - Forced expiratory volume increased [Recovering/Resolving]
  - Haematocrit increased [Unknown]
  - Infective pulmonary exacerbation of cystic fibrosis [Recovered/Resolved]
  - Weight decreased [Recovered/Resolved]
  - Blood urea increased [Unknown]
  - Mean platelet volume decreased [Unknown]
  - Sputum retention [Unknown]
  - Bronchiectasis [Unknown]
  - Pulmonary function test decreased [Recovered/Resolved]
  - Neutrophil count increased [Unknown]

NARRATIVE: CASE EVENT DATE: 201611
